FAERS Safety Report 7047443-8 (Version None)
Quarter: 2010Q4

REPORT INFORMATION
  Report Type: 
  Country: None (occurrence: None)
  Receive Date: 20101007
  Receipt Date: 20100923
  Transmission Date: 20110411
  Serious: Yes (Hospitalization, Congenital Anomaly, Other)
  Sender: FDA-Public Use
  Company Number: AUR-APL-2010-02364

PATIENT

DRUGS (8)
  1. LAMOTRIGINE [Suspect]
     Indication: GRAND MAL CONVULSION
     Dosage: BID-TRANSPLACENTAL
     Route: 064
     Dates: start: 20080319
  2. ARIPIPRAZOLE [Concomitant]
  3. DICLOFENAC SODIUM [Concomitant]
  4. FOLIC ACID [Concomitant]
  5. ISPAGHULA HUSK [Concomitant]
  6. LANSOPRAZOLE [Concomitant]
  7. PROPRANOLOL HYDROCHLORIDE [Concomitant]
  8. SERTRALINE HYDROCHLORIDE [Concomitant]

REACTIONS (2)
  - MATERNAL DRUGS AFFECTING FOETUS [None]
  - VENTRICULAR SEPTAL DEFECT [None]
